FAERS Safety Report 23401851 (Version 1)
Quarter: 2024Q1

REPORT INFORMATION
  Report Type: Spontaneous
  Country: CN (occurrence: CN)
  Receive Date: 20240115
  Receipt Date: 20240115
  Transmission Date: 20240410
  Serious: Yes (Hospitalization)
  Sender: FDA-Public Use
  Company Number: CN-Merck Healthcare KGaA-2024001341

PATIENT
  Age: 46 Year
  Sex: Male
  Weight: 63 kg

DRUGS (3)
  1. ERBITUX [Suspect]
     Active Substance: CETUXIMAB
     Indication: Tonsil cancer
     Dosage: 700 MG, UNK
     Route: 041
     Dates: start: 20231031
  2. CISPLATIN [Suspect]
     Active Substance: CISPLATIN
     Indication: Tonsil cancer
     Dosage: 105 MG, UNK, (60 MG/M2 D1 + CISPLATIN 60 MG/M2 D1)
     Route: 041
     Dates: start: 20231101, end: 20231101
  3. DOCETAXEL [Suspect]
     Active Substance: DOCETAXEL\DOCETAXEL ANHYDROUS
     Indication: Tonsil cancer
     Dosage: 105 MG, UNK
     Route: 041
     Dates: start: 20231101, end: 20231101

REACTIONS (1)
  - Myelosuppression [Recovering/Resolving]

NARRATIVE: CASE EVENT DATE: 20231106
